FAERS Safety Report 17366324 (Version 2)
Quarter: 2020Q1

REPORT INFORMATION
  Report Type: Spontaneous
  Country: US (occurrence: US)
  Receive Date: 20200118
  Receipt Date: 20200118
  Transmission Date: 20200409
  Serious: Yes (Hospitalization)
  Sender: FDA-Public Use
  Company Number: None

PATIENT
  Age: 31 Year
  Sex: Female
  Weight: 87.7 kg

DRUGS (1)
  1. CISPLATIN. [Suspect]
     Active Substance: CISPLATIN
     Dates: end: 20191230

REACTIONS (4)
  - Pyelonephritis [None]
  - Klebsiella test positive [None]
  - Urinary tract infection [None]
  - Acute kidney injury [None]

NARRATIVE: CASE EVENT DATE: 20200103
